FAERS Safety Report 8291676-X (Version None)
Quarter: 2012Q2

REPORT INFORMATION
  Report Type: 
  Country: None (occurrence: None)
  Receive Date: 20120417
  Receipt Date: 20120207
  Transmission Date: 20120825
  Serious: No
  Sender: FDA-Public Use
  Company Number: US-ASTRAZENECA-2012SE08647

PATIENT
  Age: 59 Year
  Sex: Male

DRUGS (3)
  1. RHINOCORT [Suspect]
     Route: 055
  2. SYMBICORT [Suspect]
     Dosage: 160/4.5 MCG, UNKNOWN
     Route: 055
  3. NEXIUM [Suspect]
     Route: 048

REACTIONS (3)
  - MALAISE [None]
  - FEELING ABNORMAL [None]
  - DRUG DOSE OMISSION [None]
